FAERS Safety Report 4341738-4 (Version None)
Quarter: 2004Q2

REPORT INFORMATION
  Report Type: 
  Country: None (occurrence: None)
  Receive Date: 20040415
  Receipt Date: 20040405
  Transmission Date: 20050107
  Serious: Yes (Other)
  Sender: FDA-Public Use
  Company Number: GB-JNJFOC-20040302982

PATIENT
  Sex: Male

DRUGS (5)
  1. FENTANYL [Suspect]
     Indication: PAIN
     Dosage: 25 UG/HR. 1 IN 3 DAY, TRANSDERMAL
     Route: 062
  2. DIAZEPAM [Concomitant]
  3. PREDNISOLONE [Concomitant]
  4. THYROXINE (LEVOTHYROXINE SODIUM) [Concomitant]
  5. CLONAZEPAM [Concomitant]

REACTIONS (12)
  - CONFUSIONAL STATE [None]
  - DEPRESSION [None]
  - DIZZINESS [None]
  - DYSKINESIA [None]
  - FEELING ABNORMAL [None]
  - HEADACHE [None]
  - INSOMNIA [None]
  - MUSCLE RIGIDITY [None]
  - MUSCLE SPASMS [None]
  - MUSCLE TWITCHING [None]
  - NAUSEA [None]
  - NUCHAL RIGIDITY [None]
